FAERS Safety Report 7757525-0 (Version None)
Quarter: 2011Q3

REPORT INFORMATION
  Report Type: 
  Country: None (occurrence: None)
  Receive Date: 20110916
  Receipt Date: 20110914
  Transmission Date: 20111222
  Serious: Yes (Death, Hospitalization)
  Sender: FDA-Public Use
  Company Number: FR-ROCHE-799529

PATIENT
  Sex: Male
  Weight: 47 kg

DRUGS (3)
  1. PEMETREXED [Suspect]
     Indication: CHEMOTHERAPY
     Route: 065
     Dates: start: 20110808, end: 20110808
  2. CISPLATIN [Suspect]
     Indication: CHEMOTHERAPY
     Route: 065
     Dates: start: 20110808, end: 20110808
  3. BEVACIZUMAB [Suspect]
     Indication: CHEMOTHERAPY
     Route: 065
     Dates: start: 20110808, end: 20110808

REACTIONS (10)
  - DECREASED APPETITE [None]
  - DEATH [None]
  - BACTERIAL INFECTION [None]
  - ASTHENIA [None]
  - DISEASE PROGRESSION [None]
  - DEVICE RELATED INFECTION [None]
  - RENAL FAILURE [None]
  - THROMBOCYTOPENIA [None]
  - NON-SMALL CELL LUNG CANCER METASTATIC [None]
  - DEHYDRATION [None]
